FAERS Safety Report 23523553 (Version 2)
Quarter: 2024Q1

REPORT INFORMATION
  Report Type: Spontaneous
  Country: US (occurrence: US)
  Receive Date: 20240214
  Receipt Date: 20240315
  Transmission Date: 20240410
  Serious: Yes (Other)
  Sender: FDA-Public Use
  Company Number: US-009507513-2402USA003647

PATIENT
  Age: 63 Year
  Sex: Male

DRUGS (1)
  1. JANUMET [Suspect]
     Active Substance: METFORMIN HYDROCHLORIDE\SITAGLIPTIN PHOSPHATE
     Indication: Diabetes mellitus
     Dosage: 50/1000MG, BID
     Route: 048
     Dates: start: 20221026, end: 2024

REACTIONS (2)
  - Renal failure [Not Recovered/Not Resolved]
  - Diabetic complication renal [Not Recovered/Not Resolved]

NARRATIVE: CASE EVENT DATE: 20240109
